FAERS Safety Report 9099855 (Version 2)
Quarter: 2013Q1

REPORT INFORMATION
  Report Type: Spontaneous
  Country: TR (occurrence: TR)
  Receive Date: 20130216
  Receipt Date: 20130226
  Transmission Date: 20140127
  Serious: Yes (Other)
  Sender: FDA-Public Use
  Company Number: TR-B.I. PHARMACEUTICALS,INC./RIDGEFIELD-2013-BI-04039GD

PATIENT
  Age: 2 Year
  Sex: Male

DRUGS (4)
  1. RANITIDINE [Suspect]
     Indication: ANGIOEDEMA
  2. RANITIDINE [Suspect]
     Indication: ENDOTRACHEAL INTUBATION COMPLICATION
  3. HYDROXYZINE [Suspect]
     Indication: ANGIOEDEMA
  4. HYDROXYZINE [Suspect]
     Indication: ENDOTRACHEAL INTUBATION COMPLICATION

REACTIONS (1)
  - Drug ineffective [Recovered/Resolved]
